FAERS Safety Report 11043174 (Version 1)
Quarter: 2015Q2

REPORT INFORMATION
  Report Type: Report from Study
  Country: US (occurrence: US)
  Receive Date: 20150417
  Receipt Date: 20150417
  Transmission Date: 20150821
  Serious: Yes (Hospitalization, Other)
  Sender: FDA-Public Use
  Company Number: US-BRISTOL-MYERS SQUIBB COMPANY-BMS-2015-021858

PATIENT
  Sex: Female

DRUGS (1)
  1. ABATACEPT [Suspect]
     Active Substance: ABATACEPT
     Indication: RHEUMATOID ARTHRITIS
     Dosage: 5 MG, UNK
     Route: 065

REACTIONS (6)
  - Thyroidectomy [Unknown]
  - Dry skin [Unknown]
  - Weight increased [Unknown]
  - Fatigue [Unknown]
  - Bone density decreased [Unknown]
  - Oropharyngeal discomfort [Unknown]
